FAERS Safety Report 20791192 (Version 1)
Quarter: 2022Q2

REPORT INFORMATION
  Report Type: Spontaneous
  Country: CN (occurrence: CN)
  Receive Date: 20220505
  Receipt Date: 20220505
  Transmission Date: 20220721
  Serious: Yes (Other)
  Sender: FDA-Public Use
  Company Number: CN-009507513-2205CHN000024

PATIENT
  Age: 68 Year
  Sex: Male
  Weight: 61 kg

DRUGS (5)
  1. KEYTRUDA [Suspect]
     Active Substance: PEMBROLIZUMAB
     Indication: Lung neoplasm malignant
     Dosage: 200 MG, FREQUENCY: ONCE
     Route: 041
     Dates: start: 20220328, end: 20220328
  2. CARBOPLATIN [Suspect]
     Active Substance: CARBOPLATIN
     Indication: Lung neoplasm malignant
     Dosage: 500 MG, FREQUENCY: ONCE
     Route: 041
     Dates: start: 20220328, end: 20220328
  3. PACLITAXEL [Suspect]
     Active Substance: PACLITAXEL
     Indication: Lung neoplasm malignant
     Dosage: 200 MG, FREQUENCY: ONCE
     Route: 041
     Dates: start: 20220328, end: 20220328
  4. SODIUM CHLORIDE [Concomitant]
     Active Substance: SODIUM CHLORIDE
     Indication: Medication dilution
     Dosage: 100 ML, FREQUENCY: ONCE
     Route: 041
     Dates: start: 20220328, end: 20220328
  5. DEXTROSE [Concomitant]
     Active Substance: DEXTROSE
     Indication: Medication dilution
     Dosage: 500 ML, FREQUENCY: ONCE
     Route: 041
     Dates: start: 20220328

REACTIONS (1)
  - Nerve injury [Recovering/Resolving]

NARRATIVE: CASE EVENT DATE: 20220329
